FAERS Safety Report 13899463 (Version 2)
Quarter: 2017Q3

REPORT INFORMATION
  Report Type: Spontaneous
  Country: US (occurrence: US)
  Receive Date: 20170824
  Receipt Date: 20170918
  Transmission Date: 20171127
  Serious: Yes (Death)
  Sender: FDA-Public Use
  Company Number: US-FRESENIUS MEDICAL CARE RENAL THERAPIES GROUP-FMC-1708-000840

PATIENT
  Age: 78 Year
  Sex: Male

DRUGS (1)
  1. DELFLEX [Suspect]
     Active Substance: CALCIUM CHLORIDE\DEXTROSE\MAGNESIUM CHLORIDE\SODIUM CHLORIDE\SODIUM LACTATE
     Indication: END STAGE RENAL DISEASE
     Dosage: 5 FILLS OF 2500 ML AND LAST FILL OF 2000 ML
     Route: 033
     Dates: start: 20170412

REACTIONS (2)
  - Cardiomyopathy [Fatal]
  - Fluid overload [Recovered/Resolved]

NARRATIVE: CASE EVENT DATE: 20170724
